FAERS Safety Report 11888565 (Version 1)
Quarter: 2016Q1

REPORT INFORMATION
  Report Type: Report from Study
  Country: CH (occurrence: CH)
  Receive Date: 20160105
  Receipt Date: 20160105
  Transmission Date: 20160526
  Serious: Yes (Death, Hospitalization, Other)
  Sender: FDA-Public Use
  Company Number: CH-CELGENE-151-21880-12012516

PATIENT
  Age: 73 Year
  Sex: Male

DRUGS (11)
  1. CYTARABINE. [Concomitant]
     Active Substance: CYTARABINE
     Indication: PRODUCT USED FOR UNKNOWN INDICATION
     Route: 037
     Dates: start: 20111219
  2. REVLIMID [Suspect]
     Active Substance: LENALIDOMIDE
     Route: 048
     Dates: end: 20120304
  3. REVLIMID [Suspect]
     Active Substance: LENALIDOMIDE
     Dosage: 750 MILLIGRAM
     Route: 048
     Dates: start: 20120131, end: 20120217
  4. ASPIRIN CARDIO [Concomitant]
     Active Substance: ASPIRIN
     Indication: PRODUCT USED FOR UNKNOWN INDICATION
     Route: 048
     Dates: start: 20120206
  5. RITUXIMAB [Suspect]
     Active Substance: RITUXIMAB
     Indication: DIFFUSE LARGE B-CELL LYMPHOMA
     Route: 041
     Dates: start: 20111219, end: 20120213
  6. BENDAMUSTINE [Suspect]
     Active Substance: BENDAMUSTINE
     Indication: DIFFUSE LARGE B-CELL LYMPHOMA
     Route: 041
     Dates: start: 20111219, end: 20120214
  7. FRAGMIN [Concomitant]
     Active Substance: DALTEPARIN SODIUM
     Indication: PRODUCT USED FOR UNKNOWN INDICATION
     Dosage: 18000IE
     Route: 058
     Dates: start: 20120218
  8. SOLU-CORTEF [Concomitant]
     Active Substance: HYDROCORTISONE SODIUM SUCCINATE
     Indication: PRODUCT USED FOR UNKNOWN INDICATION
     Route: 037
     Dates: start: 20111219
  9. SOLU-CORTEF [Concomitant]
     Active Substance: HYDROCORTISONE SODIUM SUCCINATE
     Route: 037
     Dates: start: 20120103
  10. CYTARABINE. [Concomitant]
     Active Substance: CYTARABINE
     Route: 037
     Dates: start: 20120103
  11. REVLIMID [Suspect]
     Active Substance: LENALIDOMIDE
     Indication: DIFFUSE LARGE B-CELL LYMPHOMA
     Route: 048
     Dates: start: 20111219, end: 20120125

REACTIONS (12)
  - Vomiting [Recovered/Resolved]
  - Atrial flutter [Recovered/Resolved with Sequelae]
  - Thrombocytopenia [Not Recovered/Not Resolved]
  - Pneumonia [Recovered/Resolved]
  - Neutropenia [Recovered/Resolved with Sequelae]
  - Headache [Recovered/Resolved]
  - Atrial flutter [Recovered/Resolved]
  - Diarrhoea [Recovered/Resolved]
  - Vitreous haemorrhage [Recovered/Resolved with Sequelae]
  - Arachnoiditis [Recovered/Resolved]
  - Fatigue [Recovered/Resolved]
  - Pneumonia [Fatal]

NARRATIVE: CASE EVENT DATE: 20120124
